FAERS Safety Report 6444178-7 (Version None)
Quarter: 2009Q4

REPORT INFORMATION
  Report Type: 
  Country: None (occurrence: None)
  Receive Date: 20091118
  Receipt Date: 20091113
  Transmission Date: 20100525
  Serious: Yes (Disabling)
  Sender: FDA-Public Use
  Company Number: US-ALLERGAN-0915825US

PATIENT
  Age: 72 Year
  Sex: Male

DRUGS (4)
  1. ALPHAGAN P [Suspect]
     Indication: GLAUCOMA
     Dosage: UNK
     Route: 047
  2. OPTIVE [Suspect]
     Indication: DRY EYE
     Dosage: UNK
     Route: 047
  3. MANY UNKNOWN EYE DROPS [Suspect]
     Indication: DRUG USE FOR UNKNOWN INDICATION
     Dosage: UNK
     Route: 047
  4. PRESERVATIVE FREE GLAUCOMA DROPS [Concomitant]
     Indication: GLAUCOMA
     Dosage: UNK
     Route: 047

REACTIONS (9)
  - BRAIN OEDEMA [None]
  - DIPLOPIA [None]
  - DRY EYE [None]
  - EXOPHTHALMOS [None]
  - EYE DISCHARGE [None]
  - EYE PAIN [None]
  - HEADACHE [None]
  - HYPERSENSITIVITY [None]
  - STRABISMUS [None]
